FAERS Safety Report 8139319-X (Version None)
Quarter: 2012Q1

REPORT INFORMATION
  Report Type: 
  Country: None (occurrence: None)
  Receive Date: 20120215
  Receipt Date: 20120208
  Transmission Date: 20120608
  Serious: Yes (Hospitalization, Other)
  Sender: FDA-Public Use
  Company Number: FR-PFIZER INC-2012039723

PATIENT
  Age: 84 Year
  Sex: Female

DRUGS (9)
  1. NEXIUM [Concomitant]
  2. RAMIPRIL [Suspect]
     Indication: PRODUCT USED FOR UNKNOWN INDICATION
     Dosage: 1.25 MG, UNK
     Route: 048
     Dates: end: 20101215
  3. ASPIRIN [Concomitant]
  4. ALLOPURINOL [Suspect]
     Indication: PRODUCT USED FOR UNKNOWN INDICATION
     Dosage: UNK
     Route: 065
     Dates: start: 20101101, end: 20101215
  5. CORDARONE [Concomitant]
  6. HUMALOG [Concomitant]
  7. OXEOL [Concomitant]
  8. FLUTICASONE PROPIONATE/SALMETEROL [Concomitant]
  9. PAROXETINE HYDROCHLORIDE [Concomitant]

REACTIONS (2)
  - TONGUE OEDEMA [None]
  - LIP INJURY [None]
